FAERS Safety Report 13247767 (Version 1)
Quarter: 2017Q1

REPORT INFORMATION
  Report Type: Spontaneous
  Country: JP (occurrence: JP)
  Receive Date: 20170217
  Receipt Date: 20170217
  Transmission Date: 20170428
  Serious: Yes (Hospitalization)
  Sender: FDA-Public Use
  Company Number: JP-MYLANLABS-2017M1009277

PATIENT

DRUGS (2)
  1. PREDNISOLONE. [Suspect]
     Active Substance: PREDNISOLONE
     Indication: POLYMYALGIA RHEUMATICA
     Dosage: 15 MG, QD
     Route: 048
  2. PREDNISOLONE. [Suspect]
     Active Substance: PREDNISOLONE
     Dosage: 8 MG, QD
     Route: 048

REACTIONS (9)
  - Lung infection [Recovering/Resolving]
  - Bacteraemia [Recovering/Resolving]
  - Staphylococcal infection [Recovering/Resolving]
  - Spinal compression fracture [Unknown]
  - Deep vein thrombosis [Unknown]
  - Burkholderia cepacia complex infection [Recovering/Resolving]
  - Klebsiella infection [Recovering/Resolving]
  - Infection [Recovering/Resolving]
  - Decreased appetite [Unknown]
